FAERS Safety Report 12459414 (Version 9)
Quarter: 2024Q2

REPORT INFORMATION
  Report Type: Other
  Country: CA (occurrence: CA)
  Receive Date: 20160613
  Receipt Date: 20240522
  Transmission Date: 20240715
  Serious: Yes (Hospitalization, Other)
  Sender: FDA-Public Use
  Company Number: CA-002147023-PHHY2013CA077388

PATIENT
  Age: 59 Year
  Sex: Male

DRUGS (12)
  1. XOLAIR [Suspect]
     Active Substance: OMALIZUMAB
     Indication: Asthma
     Route: 058
     Dates: start: 20130620
  2. XOLAIR [Suspect]
     Active Substance: OMALIZUMAB
     Dosage: 300 MG, BIW
     Route: 058
     Dates: start: 20180205
  3. XOLAIR [Suspect]
     Active Substance: OMALIZUMAB
     Dosage: 300 MG, UNK
     Route: 058
     Dates: start: 20181218
  4. XOLAIR [Suspect]
     Active Substance: OMALIZUMAB
     Route: 058
     Dates: start: 20130620
  5. XOLAIR [Suspect]
     Active Substance: OMALIZUMAB
     Route: 058
  6. THEOPHYLLINE [Concomitant]
     Active Substance: THEOPHYLLINE
     Indication: Product used for unknown indication
     Dosage: 200 MG, BID
     Route: 065
  7. PREDNISONE [Concomitant]
     Active Substance: PREDNISONE
     Indication: Product used for unknown indication
     Dosage: 15 MG, QD
     Route: 065
  8. PREDNISONE [Concomitant]
     Active Substance: PREDNISONE
     Dosage: 50 MG, QD
     Route: 065
  9. PREDNISONE [Concomitant]
     Active Substance: PREDNISONE
     Dosage: 20 MG, QD
     Route: 065
  10. PREDNISONE [Concomitant]
     Active Substance: PREDNISONE
     Dosage: INCREASE AND AND IS ON A TAPERING DOSE
     Route: 065
  11. PREDNISONE [Concomitant]
     Active Substance: PREDNISONE
     Dosage: 25 MG, QD
     Route: 065
  12. PREDNISONE [Concomitant]
     Active Substance: PREDNISONE
     Dates: start: 20180302

REACTIONS (26)
  - Pneumonia [Recovered/Resolved]
  - Asthma [Unknown]
  - Forced vital capacity decreased [Unknown]
  - Cough [Unknown]
  - Cardiac failure [Unknown]
  - Restrictive pulmonary disease [Unknown]
  - Chest discomfort [Unknown]
  - Forced expiratory volume decreased [Unknown]
  - Throat irritation [Unknown]
  - Dyspnoea [Unknown]
  - Wheezing [Not Recovered/Not Resolved]
  - Insomnia [Unknown]
  - Abdominal pain upper [Unknown]
  - Tachypnoea [Not Recovered/Not Resolved]
  - Weight increased [Unknown]
  - Herpes zoster [Unknown]
  - Blood testosterone decreased [Unknown]
  - Perfume sensitivity [Unknown]
  - Petechiae [Unknown]
  - Heart rate increased [Unknown]
  - Respiratory disorder [Unknown]
  - Oxygen saturation decreased [Unknown]
  - Dyspnoea exertional [Unknown]
  - Smoke sensitivity [Unknown]
  - Total lung capacity decreased [Unknown]
  - Incorrect dose administered [Unknown]

NARRATIVE: CASE EVENT DATE: 20130717
